FAERS Safety Report 17547390 (Version 1)
Quarter: 2020Q1

REPORT INFORMATION
  Report Type: Report from Study
  Country: None (occurrence: US)
  Receive Date: 20200316
  Receipt Date: 20200316
  Transmission Date: 20200409
  Serious: Yes (Hospitalization)
  Sender: FDA-Public Use
  Company Number: US-ABBVIE-20K-163-3317782-00

PATIENT
  Sex: Male

DRUGS (1)
  1. HUMIRA [Suspect]
     Active Substance: ADALIMUMAB
     Indication: CROHN^S DISEASE
     Dosage: HUMIRA CITRATE FREE
     Route: 058

REACTIONS (4)
  - Intestinal resection [Recovering/Resolving]
  - Appendicectomy [Recovering/Resolving]
  - Abdominal abscess [Recovering/Resolving]
  - Drug ineffective [Recovering/Resolving]
